FAERS Safety Report 25609343 (Version 1)
Quarter: 2025Q3

REPORT INFORMATION
  Report Type: Spontaneous
  Country: US (occurrence: US)
  Receive Date: 20250727
  Receipt Date: 20250727
  Transmission Date: 20251020
  Serious: Yes (Other)
  Sender: DR REDDYS
  Company Number: US-DRL-USA-USA/2025/07/011141

PATIENT
  Age: 44 Year
  Sex: Female

DRUGS (2)
  1. PEMETREXED [Suspect]
     Active Substance: PEMETREXED
     Indication: Epithelioid mesothelioma
  2. CISPLATIN [Concomitant]
     Active Substance: CISPLATIN
     Indication: Epithelioid mesothelioma

REACTIONS (1)
  - Drug ineffective [Unknown]
